FAERS Safety Report 9363792 (Version 3)
Quarter: 2013Q3

REPORT INFORMATION
  Report Type: Spontaneous
  Country: US (occurrence: US)
  Receive Date: 20130624
  Receipt Date: 20130716
  Transmission Date: 20140515
  Serious: No
  Sender: FDA-Public Use
  Company Number: US-VERTEX PHARMACEUTICALS INC-2013-007343

PATIENT
  Age: 19 Year
  Sex: Female
  Weight: 54.42 kg

DRUGS (4)
  1. INCIVEK [Suspect]
     Indication: HEPATITIS C
     Dosage: 750 MG, TID
     Route: 048
     Dates: start: 20130613
  2. RIBAVIRIN [Suspect]
     Indication: HEPATITIS C
     Dosage: 600 MG, BID
     Dates: start: 20130613
  3. RIBAVIRIN [Suspect]
     Dosage: 400 MG, BID
     Dates: start: 201306
  4. PEGASYS [Suspect]
     Indication: HEPATITIS C
     Dosage: 180 ?G, QW
     Route: 058
     Dates: start: 20130613

REACTIONS (4)
  - Blood count abnormal [Not Recovered/Not Resolved]
  - Photosensitivity reaction [Recovered/Resolved]
  - Oral disorder [Not Recovered/Not Resolved]
  - Nausea [Not Recovered/Not Resolved]
